FAERS Safety Report 5077003-X (Version None)
Quarter: 2006Q3

REPORT INFORMATION
  Report Type: 
  Country: None (occurrence: None)
  Receive Date: 20060810
  Receipt Date: 20060523
  Transmission Date: 20061208
  Serious: No
  Sender: FDA-Public Use
  Company Number: US-GLAXOSMITHKLINE-A0606687A

PATIENT
  Age: 83 Year
  Sex: Female

DRUGS (3)
  1. PAXIL [Suspect]
     Dosage: 10MG PER DAY
     Route: 048
     Dates: start: 20050501
  2. PLAVIX [Concomitant]
  3. ARICEPT [Concomitant]

REACTIONS (3)
  - ANOREXIA [None]
  - HEADACHE [None]
  - INSOMNIA [None]
